FAERS Safety Report 17433791 (Version 6)
Quarter: 2020Q4

REPORT INFORMATION
  Report Type: Report from Study
  Country: US (occurrence: US)
  Receive Date: 20200219
  Receipt Date: 20201230
  Transmission Date: 20210113
  Serious: Yes (Hospitalization, Other)
  Sender: FDA-Public Use
  Company Number: US-GILEAD-2020-0451465

PATIENT
  Age: 77 Year
  Sex: Female

DRUGS (24)
  1. CALTRATE + D PLUS [Concomitant]
  2. ESTRADIOL. [Concomitant]
     Active Substance: ESTRADIOL
  3. OFEV [Suspect]
     Active Substance: NINTEDANIB
     Indication: IDIOPATHIC PULMONARY FIBROSIS
     Dosage: 100 MG, BID
     Route: 048
  4. AMOXICILLIN/CLAV POT [Concomitant]
     Active Substance: AMOXICILLIN\CLAVULANATE POTASSIUM
  5. FLORASTOR [LACTOBACILLUS ACIDOPHILUS] [Concomitant]
  6. GABAPENTIN. [Concomitant]
     Active Substance: GABAPENTIN
  7. OFLOXACIN. [Concomitant]
     Active Substance: OFLOXACIN
  8. OFEV [Suspect]
     Active Substance: NINTEDANIB
     Indication: PULMONARY ARTERIAL HYPERTENSION
     Dosage: 150 MG, BID
     Route: 048
     Dates: start: 20191210
  9. ALEVE [Concomitant]
     Active Substance: NAPROXEN SODIUM
  10. CYTOTEC [Concomitant]
     Active Substance: MISOPROSTOL
  11. DICYCLOMINE [Concomitant]
     Active Substance: DICYCLOMINE HYDROCHLORIDE
  12. XARELTO [Concomitant]
     Active Substance: RIVAROXABAN
  13. AMBRISENTAN [Suspect]
     Active Substance: AMBRISENTAN
     Indication: PULMONARY ARTERIAL HYPERTENSION
     Dosage: 5 MG, QD
     Route: 048
     Dates: start: 20171017
  14. ALIGN [Concomitant]
     Active Substance: BIFIDOBACTERIUM LONGUM SUBSP. INFANTIS
  15. FUROSEMIDE. [Concomitant]
     Active Substance: FUROSEMIDE
  16. DILTIAZEM. [Concomitant]
     Active Substance: DILTIAZEM
  17. LANSOPRAZOLE. [Concomitant]
     Active Substance: LANSOPRAZOLE
  18. CALCITRATE [Concomitant]
     Active Substance: CALCIUM CITRATE
  19. LOPERAMIDE [Concomitant]
     Active Substance: LOPERAMIDE
  20. AMBRISENTAN [Suspect]
     Active Substance: AMBRISENTAN
     Indication: PULMONARY ARTERIAL HYPERTENSION
  21. SPIRONOLACTON [Concomitant]
     Active Substance: SPIRONOLACTONE
  22. RIFAXIMIN. [Concomitant]
     Active Substance: RIFAXIMIN
  23. ONDANSETRON [Concomitant]
     Active Substance: ONDANSETRON
  24. XIFAXAN [Concomitant]
     Active Substance: RIFAXIMIN

REACTIONS (18)
  - Abdominal pain [Not Recovered/Not Resolved]
  - Muscle spasms [Not Recovered/Not Resolved]
  - Product dose omission issue [Recovered/Resolved]
  - Pulmonary arterial hypertension [Unknown]
  - Arthralgia [Not Recovered/Not Resolved]
  - Diarrhoea [Not Recovered/Not Resolved]
  - Memory impairment [Unknown]
  - Hepatic pain [Not Recovered/Not Resolved]
  - Pain in extremity [Not Recovered/Not Resolved]
  - Gastrointestinal disorder [Not Recovered/Not Resolved]
  - Drug hypersensitivity [Not Recovered/Not Resolved]
  - Abdominal pain upper [Not Recovered/Not Resolved]
  - Pain [Not Recovered/Not Resolved]
  - Diarrhoea haemorrhagic [Not Recovered/Not Resolved]
  - Fluid retention [Not Recovered/Not Resolved]
  - Urticaria [Not Recovered/Not Resolved]
  - Chemotherapy [Recovered/Resolved]
  - Weight decreased [Not Recovered/Not Resolved]

NARRATIVE: CASE EVENT DATE: 202001
